FAERS Safety Report 4704857-6 (Version None)
Quarter: 2005Q3

REPORT INFORMATION
  Report Type: 
  Country: None (occurrence: None)
  Receive Date: 20050701
  Receipt Date: 20050621
  Transmission Date: 20060218
  Serious: Yes (Life-Threatening, Other)
  Sender: FDA-Public Use
  Company Number: JP-ABBOTT-05P-087-0303924-00

PATIENT
  Age: 76 Year
  Sex: Male
  Weight: 34 kg

DRUGS (3)
  1. LOWMORIN [Suspect]
     Indication: HAEMODIALYSIS
     Route: 042
  2. NAFAMOSTAT MESILATE [Concomitant]
     Indication: HAEMODIALYSIS
     Route: 042
  3. HEPARIN [Concomitant]
     Indication: DRUG USE FOR UNKNOWN INDICATION

REACTIONS (5)
  - C-REACTIVE PROTEIN INCREASED [None]
  - EATING DISORDER [None]
  - HAEMOGLOBIN DECREASED [None]
  - PLATELET COUNT DECREASED [None]
  - PYREXIA [None]
